FAERS Safety Report 11465244 (Version 2)
Quarter: 2015Q3

REPORT INFORMATION
  Report Type: Spontaneous
  Country: US (occurrence: US)
  Receive Date: 20150907
  Receipt Date: 20150911
  Transmission Date: 20151125
  Serious: Yes (Other)
  Sender: FDA-Public Use
  Company Number: US-AMGEN-USASP2015091007

PATIENT
  Age: 14 Year
  Sex: Female

DRUGS (1)
  1. NEUPOGEN [Suspect]
     Active Substance: FILGRASTIM
     Indication: NEUTROPENIA
     Dosage: 150 MCG, UNK
     Route: 065

REACTIONS (8)
  - Vomiting [Unknown]
  - Drug ineffective [Unknown]
  - Chills [Unknown]
  - Neutropenia [Unknown]
  - Neutrophil count abnormal [Unknown]
  - Malaise [Unknown]
  - Pyrexia [Unknown]
  - Nausea [Unknown]
